FAERS Safety Report 21048399 (Version 5)
Quarter: 2022Q3

REPORT INFORMATION
  Report Type: Report from Study
  Country: CL (occurrence: None)
  Receive Date: 20220706
  Receipt Date: 20220805
  Transmission Date: 20221027
  Serious: No
  Sender: FDA-Public Use
  Company Number: CL-Eisai Medical Research-EC-2022-118251

PATIENT
  Age: 69 Year
  Sex: Male
  Weight: 75.4 kg

DRUGS (8)
  1. LENVATINIB [Suspect]
     Active Substance: LENVATINIB
     Indication: Clear cell renal cell carcinoma
     Route: 048
     Dates: start: 20220517, end: 20220607
  2. PEMBROLIZUMAB [Suspect]
     Active Substance: PEMBROLIZUMAB
     Indication: Clear cell renal cell carcinoma
     Route: 041
     Dates: start: 20220517, end: 20220517
  3. LOSARTAN [Concomitant]
     Active Substance: LOSARTAN
     Dates: start: 200701
  4. ACENOCOUMAROL [Concomitant]
     Active Substance: ACENOCOUMAROL
     Dates: start: 20220113
  5. AMLODIPINE [Concomitant]
     Active Substance: AMLODIPINE BESYLATE
     Dates: start: 20220607
  6. UREA [Concomitant]
     Active Substance: UREA
     Dates: start: 20220620
  7. CHLORPHENIRAMINE MALEATE [Concomitant]
     Active Substance: CHLORPHENIRAMINE MALEATE
     Dates: start: 20220620
  8. CARVEDILOL [Concomitant]
     Active Substance: CARVEDILOL
     Dates: start: 20220620

REACTIONS (1)
  - Lipase increased [Recovering/Resolving]

NARRATIVE: CASE EVENT DATE: 20220628
